FAERS Safety Report 13385526 (Version 1)
Quarter: 2017Q1

REPORT INFORMATION
  Report Type: Report from Study
  Country: US (occurrence: US)
  Receive Date: 20170330
  Receipt Date: 20170330
  Transmission Date: 20170429
  Serious: No
  Sender: FDA-Public Use
  Company Number: US-GUERBET LLC-1064829

PATIENT
  Age: 59 Year
  Sex: Male

DRUGS (3)
  1. MITOMYCIN. [Concomitant]
     Active Substance: MITOMYCIN
     Route: 013
  2. LIPIODOL [Suspect]
     Active Substance: ETHIODIZED OIL
     Indication: TRANSCATHETER ARTERIAL CHEMOEMBOLISATION
     Route: 013
  3. 300-MICRON POLYVINYL ALCOHOL [Concomitant]
     Route: 013

REACTIONS (2)
  - Off label use [Recovered/Resolved]
  - No adverse event [Recovered/Resolved]
